FAERS Safety Report 23688469 (Version 2)
Quarter: 2024Q2

REPORT INFORMATION
  Report Type: Spontaneous
  Country: US (occurrence: US)
  Receive Date: 20240329
  Receipt Date: 20240422
  Transmission Date: 20240716
  Serious: No
  Sender: FDA-Public Use
  Company Number: US-SA-SAC20240327000099

PATIENT
  Age: 55 Year
  Sex: Male

DRUGS (6)
  1. DUPIXENT [Suspect]
     Active Substance: DUPILUMAB
     Indication: Dermatitis atopic
     Dosage: 300 MG, QOW
     Route: 058
     Dates: end: 20240216
  2. FAMOTIDINE [Concomitant]
     Active Substance: FAMOTIDINE
  3. SAXENDA [Concomitant]
     Active Substance: LIRAGLUTIDE
  4. TESTOSTERONE [Concomitant]
     Active Substance: TESTOSTERONE
  5. APIXABAN [Concomitant]
     Active Substance: APIXABAN
  6. LYRICA [Concomitant]
     Active Substance: PREGABALIN

REACTIONS (1)
  - Back pain [Recovered/Resolved]

NARRATIVE: CASE EVENT DATE: 20231210
